FAERS Safety Report 7551920-0 (Version None)
Quarter: 2011Q2

REPORT INFORMATION
  Report Type: 
  Country: None (occurrence: None)
  Receive Date: 20110616
  Receipt Date: 20110530
  Transmission Date: 20111010
  Serious: Yes (Life-Threatening, Hospitalization)
  Sender: FDA-Public Use
  Company Number: US-BAYER-201040894NA

PATIENT
  Age: 23 Year
  Sex: Female
  Weight: 73 kg

DRUGS (14)
  1. ANTIBIOTICS [Concomitant]
  2. HEPARIN [Concomitant]
     Dosage: UNK
     Dates: start: 20081001, end: 20081101
  3. COUMADIN [Concomitant]
     Dosage: UNK
     Dates: start: 20081001, end: 20081101
  4. FRAGMIN [Concomitant]
     Dosage: UNK
     Dates: start: 20081001, end: 20081101
  5. LOVENOX [Concomitant]
     Dosage: UNK
     Dates: start: 20081001, end: 20081101
  6. IBUPROFEN [Concomitant]
  7. ASCORBIC ACID [Concomitant]
  8. SPIRONOLACTONE [Concomitant]
  9. JOVILETTE [Concomitant]
  10. ZOLOFT [Concomitant]
  11. MIGROGESTIN [Concomitant]
  12. YAZ [Suspect]
     Indication: CONTRACEPTION
     Dosage: UNK
     Dates: start: 20080101, end: 20090101
  13. IMITREX [Concomitant]
     Dosage: UNK
     Dates: start: 20080101
  14. WARFARIN SODIUM [Concomitant]
     Dosage: UNK
     Dates: start: 20081001, end: 20081101

REACTIONS (4)
  - PAIN [None]
  - GALLBLADDER DISORDER [None]
  - FATIGUE [None]
  - CHOLECYSTITIS CHRONIC [None]
